FAERS Safety Report 8161344-3 (Version None)
Quarter: 2012Q1

REPORT INFORMATION
  Report Type: 
  Country: None (occurrence: None)
  Receive Date: 20120224
  Receipt Date: 20120214
  Transmission Date: 20120608
  Serious: Yes (Hospitalization)
  Sender: FDA-Public Use
  Company Number: ES-JNJFOC-20110509579

PATIENT
  Sex: Female
  Weight: 62.5 kg

DRUGS (6)
  1. PALIPERIDONE PALMITATE [Suspect]
     Dates: start: 20110309, end: 20110309
  2. PALIPERIDONE PALMITATE [Suspect]
     Dates: start: 20110210, end: 20110210
  3. PALIPERIDONE PALMITATE [Suspect]
     Dates: start: 20110511, end: 20110511
  4. PALIPERIDONE PALMITATE [Suspect]
     Dates: start: 20110608
  5. PALIPERIDONE PALMITATE [Suspect]
     Dates: start: 20110706, end: 20110706
  6. PALIPERIDONE PALMITATE [Suspect]
     Indication: SCHIZOPHRENIA, PARANOID TYPE
     Dates: start: 20110411, end: 20110411

REACTIONS (2)
  - SUICIDAL IDEATION [None]
  - PSYCHOTIC DISORDER [None]
